FAERS Safety Report 4263640-9 (Version None)
Quarter: 2004Q1

REPORT INFORMATION
  Report Type: 
  Country: None (occurrence: None)
  Receive Date: 20040102
  Receipt Date: 20031222
  Transmission Date: 20041129
  Serious: Yes (Hospitalization)
  Sender: FDA-Public Use
  Company Number: CL-JNJFOC-20031204656

PATIENT
  Age: 3 Year
  Sex: Male

DRUGS (1)
  1. ULTRAM [Suspect]
     Indication: POSTOPERATIVE ANALGESIA
     Dosage: 250 MG, IN 1 DAY, ORAL
     Route: 048
     Dates: start: 20031005, end: 20031005

REACTIONS (4)
  - MEDICATION ERROR [None]
  - OVERDOSE [None]
  - POST PROCEDURAL COMPLICATION [None]
  - PRURITUS [None]
